FAERS Safety Report 12658654 (Version 1)
Quarter: 2016Q3

REPORT INFORMATION
  Report Type: Spontaneous
  Country: CA (occurrence: CA)
  Receive Date: 20160817
  Receipt Date: 20160817
  Transmission Date: 20161109
  Serious: Yes (Disabling)
  Sender: FDA-Public Use
  Company Number: CA-AMGEN-CANSP2016104016

PATIENT
  Age: 86 Year
  Sex: Female
  Weight: 72 kg

DRUGS (2)
  1. ACLASTA [Suspect]
     Active Substance: ZOLEDRONIC ACID
     Indication: PRODUCT USED FOR UNKNOWN INDICATION
     Dosage: UNK
     Route: 042
     Dates: start: 2012
  2. PROLIA [Suspect]
     Active Substance: DENOSUMAB
     Indication: OSTEOPOROSIS
     Dosage: 1 ML, Q12H
     Route: 058
     Dates: start: 2015

REACTIONS (5)
  - Femur fracture [Unknown]
  - Joint stiffness [Unknown]
  - Arthritis [Unknown]
  - Multiple fractures [Unknown]
  - Rotator cuff syndrome [Unknown]
